FAERS Safety Report 6124096-4 (Version None)
Quarter: 2009Q1

REPORT INFORMATION
  Report Type: 
  Country: None (occurrence: None)
  Receive Date: 20090317
  Receipt Date: 20090304
  Transmission Date: 20090719
  Serious: Yes (Death, Hospitalization)
  Sender: FDA-Public Use
  Company Number: PAR_02873_2009

PATIENT
  Age: 3 Year
  Sex: Male
  Weight: 16.7 kg

DRUGS (7)
  1. DEXAMETHASONE TAB [Suspect]
     Indication: PROPHYLAXIS OF NAUSEA AND VOMITING
     Dosage: (0.25 MG/KG 1X INTRAVENOUS))
     Route: 042
  2. OMEPRAZOLE [Concomitant]
  3. OXYGEN/NITROUS OXIDE [Concomitant]
  4. SEVOFLURANE [Concomitant]
  5. PROPOFOL [Concomitant]
  6. PARACETAMOL [Concomitant]
  7. ONDANSETRON [Concomitant]

REACTIONS (17)
  - AGGRESSION [None]
  - APNOEA [None]
  - B PRECURSOR TYPE ACUTE LEUKAEMIA [None]
  - CARDIO-RESPIRATORY ARREST [None]
  - CRYING [None]
  - CYANOSIS [None]
  - HYPERKALAEMIA [None]
  - HYPERLACTACIDAEMIA [None]
  - HYPERPHOSPHATAEMIA [None]
  - HYPOXIC ENCEPHALOPATHY [None]
  - PLATELET COUNT DECREASED [None]
  - POST PROCEDURAL COMPLICATION [None]
  - RESPIRATORY DEPRESSION [None]
  - SOMNOLENCE [None]
  - STRIDOR [None]
  - TUMOUR LYSIS SYNDROME [None]
  - UNRESPONSIVE TO STIMULI [None]
